FAERS Safety Report 13008597 (Version 3)
Quarter: 2017Q1

REPORT INFORMATION
  Report Type: Spontaneous
  Country: US (occurrence: US)
  Receive Date: 20161208
  Receipt Date: 20170210
  Transmission Date: 20170428
  Serious: No
  Sender: FDA-Public Use
  Company Number: US-PFIZER INC-2016561865

PATIENT
  Age: 72 Year
  Sex: Male
  Weight: 95.25 kg

DRUGS (1)
  1. NEURONTIN [Suspect]
     Active Substance: GABAPENTIN
     Dosage: UNK

REACTIONS (2)
  - Drug ineffective [Unknown]
  - Dyspnoea [Unknown]
